FAERS Safety Report 8575433-2 (Version None)
Quarter: 2012Q3

REPORT INFORMATION
  Report Type: 
  Country: None (occurrence: None)
  Receive Date: 20120807
  Receipt Date: 20120723
  Transmission Date: 20120928
  Serious: Yes (Death, Hospitalization)
  Sender: FDA-Public Use
  Company Number: PHHO2012ZA011360

PATIENT
  Sex: Male

DRUGS (4)
  1. RIDAQ [Concomitant]
     Indication: HYPERTENSION
  2. SANDOSTATIN LAR [Suspect]
  3. TRAMADOL HCL [Concomitant]
     Indication: ANALGESIC THERAPY
     Dosage: 10 MG, UNK
     Dates: start: 20110802, end: 20120224
  4. OMEPRAZOLE (PRISOLEC) [Concomitant]
     Indication: GASTRITIS
     Dosage: 20 MG, BID
     Dates: start: 20110802, end: 20120224

REACTIONS (1)
  - GASTROINTESTINAL HAEMORRHAGE [None]
